FAERS Safety Report 4837201-4 (Version None)
Quarter: 2005Q4

REPORT INFORMATION
  Report Type: 
  Country: None (occurrence: None)
  Receive Date: 20051122
  Receipt Date: 20051110
  Transmission Date: 20060501
  Serious: Yes (Hospitalization)
  Sender: FDA-Public Use
  Company Number: 219394

PATIENT
  Age: 7 Year
  Sex: Female
  Weight: 15.1 kg

DRUGS (1)
  1. NUTROPIN [Suspect]
     Indication: GROWTH HORMONE DEFICIENCY
     Dosage: 0.7 MG QD SUBCUTANEOUS
     Route: 058
     Dates: start: 19990322, end: 20050301

REACTIONS (5)
  - DEHYDRATION [None]
  - HYPOGLYCAEMIA [None]
  - PYREXIA [None]
  - VIRAL INFECTION [None]
  - VOMITING [None]
